FAERS Safety Report 8886758 (Version 3)
Quarter: 2013Q4

REPORT INFORMATION
  Report Type: Spontaneous
  Country: US (occurrence: US)
  Receive Date: 20121105
  Receipt Date: 20131226
  Transmission Date: 20140711
  Serious: Yes (Other)
  Sender: FDA-Public Use
  Company Number: PHEH2012US002295

PATIENT
  Age: 9 Year
  Sex: Male
  Weight: 53.4 kg

DRUGS (6)
  1. AFINITOR (RAD) [Suspect]
     Indication: TUBEROUS SCLEROSIS
     Dosage: 5 MG, QD
     Route: 048
     Dates: start: 20111015
  2. KEPPRA [Concomitant]
     Indication: EPILEPSY
     Dosage: 3 DF, BID
     Route: 048
     Dates: start: 20111118, end: 20120323
  3. DIASTAT [Concomitant]
     Indication: EPILEPSY
     Dosage: 15 MG, PRN FOR SEIZURES } 5 MINS
     Route: 054
     Dates: start: 20110908
  4. LEVETIRACETAM [Concomitant]
  5. VITAMIN B6 (PYRIDOXINE HYDROCHLORIDE) [Concomitant]
  6. MELATONIN (MELATONIN) [Concomitant]

REACTIONS (10)
  - Convulsion [Recovering/Resolving]
  - Diarrhoea [Recovered/Resolved]
  - Vomiting [Recovered/Resolved]
  - Headache [Recovered/Resolved]
  - Aggression [Unknown]
  - Gastroenteritis [None]
  - Viral infection [None]
  - Malaise [None]
  - Pyrexia [None]
  - Abdominal pain upper [None]
